FAERS Safety Report 5744481-X (Version None)
Quarter: 2008Q2

REPORT INFORMATION
  Report Type: 
  Country: None (occurrence: None)
  Receive Date: 20080520
  Receipt Date: 20080515
  Transmission Date: 20081010
  Serious: Yes (Other)
  Sender: FDA-Public Use
  Company Number: BG-ASTRAZENECA-2008SE02079

PATIENT
  Age: 78 Year
  Sex: Male

DRUGS (4)
  1. SYMBICORT [Suspect]
     Dosage: 160/4.5 MICROGRAM BID
     Route: 055
     Dates: start: 20060801
  2. SYMBICORT [Suspect]
     Indication: CHRONIC OBSTRUCTIVE PULMONARY DISEASE
     Dosage: 160/4.5 MICROGRAM BID
     Route: 055
     Dates: start: 20060801
  3. SYMBICORT [Suspect]
     Dosage: 160/4.5 MICROGRAM BID
     Route: 055
     Dates: end: 20071201
  4. SYMBICORT [Suspect]
     Dosage: 160/4.5 MICROGRAM BID
     Route: 055
     Dates: end: 20071201

REACTIONS (2)
  - HAEMOGLOBIN DECREASED [None]
  - RED BLOOD CELL SEDIMENTATION RATE INCREASED [None]
